FAERS Safety Report 4687944-0 (Version None)
Quarter: 2005Q2

REPORT INFORMATION
  Report Type: 
  Country: None (occurrence: None)
  Receive Date: 20050610
  Receipt Date: 20050602
  Transmission Date: 20051028
  Serious: Yes (Other)
  Sender: FDA-Public Use
  Company Number: JP-GLAXOSMITHKLINE-B0383305A

PATIENT
  Age: 64 Year
  Sex: Female

DRUGS (5)
  1. IMIGRAN [Suspect]
     Indication: MIGRAINE
     Dosage: 50MG SINGLE DOSE
     Route: 048
     Dates: start: 20050602, end: 20050602
  2. ALLOTOP [Concomitant]
     Route: 048
  3. UNKNOWN [Concomitant]
     Route: 065
  4. LENDEM [Concomitant]
     Route: 048
  5. VOLTAREN [Concomitant]
     Route: 065

REACTIONS (3)
  - DYSPNOEA [None]
  - HYPOAESTHESIA [None]
  - HYPOXIA [None]
